FAERS Safety Report 9093026 (Version 1)
Quarter: 2013Q1

REPORT INFORMATION
  Report Type: Spontaneous
  Country: FR (occurrence: FR)
  Receive Date: 20130201
  Receipt Date: 20130201
  Transmission Date: 20140127
  Serious: Yes (Hospitalization)
  Sender: FDA-Public Use
  Company Number: FR-PFIZER INC-2012264571

PATIENT
  Age: 86 Year
  Sex: Male

DRUGS (8)
  1. EFFEXOR LP [Suspect]
     Dosage: 37.5 MG, 1X/DAY
     Route: 048
     Dates: end: 20120923
  2. DUOPLAVIN [Suspect]
     Indication: PLATELET AGGREGATION INHIBITION
     Dosage: 1 DF, 1X/DAY
     Route: 048
     Dates: start: 201206, end: 20120923
  3. RAMIPRIL [Concomitant]
     Indication: HYPERTENSION
     Dosage: 1.5 MG DAILY
     Route: 048
     Dates: end: 201206
  4. RAMIPRIL [Concomitant]
     Dosage: 1.25 MG, 1X/DAY
     Route: 048
     Dates: start: 201206, end: 20120923
  5. ADANCOR [Concomitant]
     Indication: HYPERTENSION
     Dosage: 10 MG, 2X/DAY
     Route: 048
     Dates: start: 2010, end: 20120903
  6. CRESTOR [Concomitant]
     Dosage: 20 MG, 1X/DAY
     Route: 048
  7. TAVANIC [Concomitant]
     Dosage: 500 MG, 1X/DAY
     Route: 048
     Dates: start: 20120912, end: 20120923
  8. METOPROLOL FUMARATE [Concomitant]
     Indication: HYPERTENSION
     Dosage: 100 MG, 2X/DAY
     Route: 048

REACTIONS (4)
  - Haemothorax [Recovered/Resolved]
  - Anaemia [Recovered/Resolved]
  - Fall [Unknown]
  - Presyncope [Unknown]
